FAERS Safety Report 4704393-7 (Version None)
Quarter: 2005Q2

REPORT INFORMATION
  Report Type: 
  Country: None (occurrence: None)
  Receive Date: 20050630
  Receipt Date: 20030818
  Transmission Date: 20051028
  Serious: Yes (Hospitalization)
  Sender: FDA-Public Use
  Company Number: JP-GLAXOSMITHKLINE-B0307019A

PATIENT
  Age: 16 Year
  Sex: Female
  Weight: 54 kg

DRUGS (3)
  1. LAMOTRIGINE [Suspect]
     Indication: EPILEPSY
     Dosage: 62.5MG TWICE PER DAY
     Route: 048
     Dates: start: 20030607
  2. MESTRANOL + NORETHISTERONE [Suspect]
  3. ETHOSUXIMIDE [Concomitant]

REACTIONS (4)
  - MENSTRUATION IRREGULAR [None]
  - PALLOR [None]
  - RADICULAR CYST [None]
  - UTERINE HAEMORRHAGE [None]
